FAERS Safety Report 5927071-5 (Version None)
Quarter: 2008Q4

REPORT INFORMATION
  Report Type: 
  Country: None (occurrence: None)
  Receive Date: 20081022
  Receipt Date: 20081016
  Transmission Date: 20090506
  Serious: No
  Sender: FDA-Public Use
  Company Number: US-B.I. PHARMACEUTICALS,INC./RIDGEFIELD-2008-BP-15876BP

PATIENT
  Age: 72 Year
  Sex: Female

DRUGS (4)
  1. MIRAPEX [Suspect]
     Indication: RESTLESS LEGS SYNDROME
     Dosage: .25MG
     Route: 048
     Dates: start: 20081011
  2. ESTEROL [Concomitant]
     Indication: HORMONE THERAPY
     Dosage: 2MG
  3. LOVASTATIN [Concomitant]
     Indication: BLOOD CHOLESTEROL
     Dosage: 40MG
  4. DILTIAZEM HCL [Concomitant]
     Indication: HYPERTENSION
     Dosage: 180MG

REACTIONS (2)
  - DRUG INEFFECTIVE [None]
  - HEADACHE [None]
